FAERS Safety Report 25664944 (Version 1)
Quarter: 2025Q3

REPORT INFORMATION
  Report Type: Spontaneous
  Country: US (occurrence: None)
  Receive Date: 20250809
  Receipt Date: 20250809
  Transmission Date: 20251020
  Serious: Yes (Hospitalization)
  Sender: FDA-CTU
  Company Number: None

PATIENT
  Age: 52 Year
  Sex: Male
  Weight: 61.2 kg

DRUGS (5)
  1. CEPHALEXIN [Suspect]
     Active Substance: CEPHALEXIN
     Indication: Skin infection
     Dosage: OTHER QUANTITY : 1 CAPSULE(S);?FREQUENCY : 4 TIMES A DAY;?
     Route: 048
     Dates: start: 20250708, end: 20250709
  2. CEPHALEXIN [Suspect]
     Active Substance: CEPHALEXIN
     Indication: Abscess
  3. Flonase for dust allergies [Concomitant]
  4. vitamin D3 and K2 [Concomitant]
  5. VITAMIN B12 [Concomitant]
     Active Substance: CYANOCOBALAMIN

REACTIONS (1)
  - Atrioventricular block complete [None]

NARRATIVE: CASE EVENT DATE: 20250709
